FAERS Safety Report 7846710-5 (Version None)
Quarter: 2011Q4

REPORT INFORMATION
  Report Type: 
  Country: None (occurrence: None)
  Receive Date: 20111025
  Receipt Date: 20111021
  Transmission Date: 20120403
  Serious: Yes (Other)
  Sender: FDA-Public Use
  Company Number: PHHY2011NO72280

PATIENT
  Age: 19 Year
  Sex: Male

DRUGS (2)
  1. CLOZAPINE [Suspect]
     Indication: SCHIZOPHRENIA
     Dosage: UNK UKN, UNK
  2. CLOZAPINE [Suspect]
     Dosage: 100 MG, UNK

REACTIONS (6)
  - ABNORMAL BEHAVIOUR [None]
  - EYE MOVEMENT DISORDER [None]
  - HYPOTENSION [None]
  - TREMOR [None]
  - MUSCLE SPASMS [None]
  - LOSS OF CONSCIOUSNESS [None]
